FAERS Safety Report 5039684-6 (Version None)
Quarter: 2006Q2

REPORT INFORMATION
  Report Type: 
  Country: None (occurrence: None)
  Receive Date: 20060629
  Receipt Date: 20060620
  Transmission Date: 20061013
  Serious: Yes (Other)
  Sender: FDA-Public Use
  Company Number: JP-MERCK-0606USA04452

PATIENT

DRUGS (2)
  1. PRIMAXIN [Suspect]
     Indication: ANTI-INFECTIVE THERAPY
     Route: 042
     Dates: start: 20060601, end: 20060619
  2. [THERAPY UNSPECIFIED] [Concomitant]
     Route: 065

REACTIONS (4)
  - CONVULSION [None]
  - DEPRESSED LEVEL OF CONSCIOUSNESS [None]
  - HEMIPLEGIA [None]
  - PARALYSIS [None]
